FAERS Safety Report 10699081 (Version 2)
Quarter: 2015Q1

REPORT INFORMATION
  Report Type: Spontaneous
  Country: CA (occurrence: CA)
  Receive Date: 20150108
  Receipt Date: 20150108
  Transmission Date: 20150721
  Serious: Yes (Other)
  Sender: FDA-Public Use
  Company Number: ALCN2014CA007224

PATIENT
  Age: 80 Year
  Sex: Female
  Weight: 40 kg

DRUGS (1)
  1. BETAXOLOL HCL [Suspect]
     Active Substance: BETAXOLOL
     Indication: PROPHYLAXIS
     Dosage: 2 GTT, ONCE/SINGLE
     Route: 047

REACTIONS (6)
  - Asthma [Recovered/Resolved]
  - Cough [Recovered/Resolved]
  - Dyspnoea [Recovered/Resolved]
  - Wheezing [Recovered/Resolved]
  - Condition aggravated [Recovered/Resolved]
  - Rales [Recovered/Resolved]
